FAERS Safety Report 5249637-0 (Version None)
Quarter: 2007Q1

REPORT INFORMATION
  Report Type: 
  Country: None (occurrence: None)
  Receive Date: 20070228
  Receipt Date: 20060515
  Transmission Date: 20070707
  Serious: No
  Sender: FDA-Public Use
  Company Number: 2005SP000134

PATIENT
  Age: 44 Year
  Sex: Female

DRUGS (3)
  1. IMITREX [Suspect]
     Indication: MIGRAINE
     Route: 065
  2. LUNESTA [Concomitant]
  3. TOPAMAX [Concomitant]

REACTIONS (1)
  - BLOOD PRESSURE INCREASED [None]
